FAERS Safety Report 6534886-1 (Version None)
Quarter: 2010Q1

REPORT INFORMATION
  Report Type: 
  Country: None (occurrence: None)
  Receive Date: 20100112
  Receipt Date: 20100105
  Transmission Date: 20100710
  Serious: Yes (Other)
  Sender: FDA-Public Use
  Company Number: NL-SANOFI-AVENTIS-2010SA000514

PATIENT
  Age: 48 Year
  Sex: Male

DRUGS (11)
  1. FEXOFENADINE HCL [Suspect]
     Dates: start: 20090511
  2. HYDROCHLOROTHIAZIDE [Concomitant]
  3. ACETYLSALICYLZUUR [Concomitant]
     Dates: start: 20090217
  4. TOLBUTAMIDE [Concomitant]
     Dates: end: 20090511
  5. TOLBUTAMIDE [Concomitant]
     Dates: start: 20090512
  6. SIMVASTATIN [Concomitant]
  7. NASONEX [Concomitant]
     Dates: start: 20090511, end: 20090717
  8. LIVOCAB [Concomitant]
     Dates: start: 20090602, end: 20090727
  9. METFORMIN HYDROCHLORIDE [Concomitant]
  10. SOTALOL [Concomitant]
  11. ENALAPRIL [Concomitant]

REACTIONS (1)
  - ATRIAL FIBRILLATION [None]
